FAERS Safety Report 7490179-X (Version None)
Quarter: 2011Q2

REPORT INFORMATION
  Report Type: 
  Country: None (occurrence: None)
  Receive Date: 20110519
  Receipt Date: 20110421
  Transmission Date: 20111010
  Serious: Yes (Other)
  Sender: FDA-Public Use
  Company Number: US-BAYER-201029858NA

PATIENT
  Age: 24 Year
  Sex: Female
  Weight: 70.295 kg

DRUGS (8)
  1. BENZACLIN [Concomitant]
     Route: 061
  2. YAZ [Suspect]
     Indication: ACNE
     Dosage: UNK UNK, QD
     Route: 048
     Dates: start: 20080101, end: 20080101
  3. DIFFERIN [Concomitant]
     Route: 061
  4. YAZ [Suspect]
     Indication: CONTRACEPTION
  5. YASMIN [Suspect]
     Indication: ACNE
     Dosage: UNK UNK, QD
     Route: 048
     Dates: start: 20050101, end: 20080101
  6. YASMIN [Suspect]
     Indication: CONTRACEPTION
  7. SEPTRA DS [Concomitant]
  8. BACTRIM [Concomitant]
     Route: 048

REACTIONS (2)
  - CHOLELITHIASIS [None]
  - CHOLECYSTITIS CHRONIC [None]
